FAERS Safety Report 8363876-1 (Version None)
Quarter: 2012Q1

REPORT INFORMATION
  Report Type: 
  Country: None (occurrence: None)
  Receive Date: 20120323
  Receipt Date: 20111125
  Transmission Date: 20120608
  Serious: Yes (Hospitalization)
  Sender: FDA-Public Use
  Company Number: 163-21880-11113748

PATIENT
  Age: 47 Year
  Sex: Male
  Weight: 72.5755 kg

DRUGS (12)
  1. PERCOCET [Concomitant]
  2. REVLIMID [Suspect]
     Indication: MULTIPLE MYELOMA
     Dosage: 25 MG, DAILY X 21 DAYS, PO
     Route: 048
     Dates: start: 20110310
  3. GABAPENTIN [Concomitant]
  4. CLONIDINE [Concomitant]
  5. PYRIDOXIN (PYRIDOXINE HYDROCHLORIDE) [Concomitant]
  6. ENSURE (ENSURE) [Concomitant]
  7. CORVITA (CORVITE) [Concomitant]
  8. ACYCLOVIR [Concomitant]
  9. LISINOPRIL [Concomitant]
  10. CALCIUM WITH VITAMIN D (CALCIUM WITH VITAMIN D) [Concomitant]
  11. DEXAMETHASONE [Concomitant]
  12. METOPROLOL TARTRATE [Concomitant]

REACTIONS (1)
  - PLASMACYTOMA [None]
